FAERS Safety Report 9014545 (Version 2)
Quarter: 2013Q4

REPORT INFORMATION
  Report Type: Spontaneous
  Country: GB (occurrence: GB)
  Receive Date: 20130115
  Receipt Date: 20131017
  Transmission Date: 20140711
  Serious: Yes (Death, Hospitalization, Other)
  Sender: FDA-Public Use
  Company Number: GB-TARO-2013P1000197

PATIENT
  Age: 75 Year
  Sex: Male
  Weight: 110 kg

DRUGS (7)
  1. WARFARIN [Suspect]
     Indication: ATRIAL FIBRILLATION
     Route: 048
     Dates: end: 20121002
  2. ATENOLOL [Concomitant]
  3. ATORVASTATIN [Concomitant]
  4. DIGOXIN [Concomitant]
  5. DOXAZOSIN [Concomitant]
  6. LISINOPRIL [Concomitant]
  7. FUROSEMIDE [Concomitant]

REACTIONS (4)
  - Cerebellar haemorrhage [Fatal]
  - Respiratory arrest [Not Recovered/Not Resolved]
  - Arthritis bacterial [Not Recovered/Not Resolved]
  - International normalised ratio abnormal [Fatal]
